FAERS Safety Report 8146457-4 (Version None)
Quarter: 2012Q1

REPORT INFORMATION
  Report Type: 
  Country: None (occurrence: None)
  Receive Date: 20120217
  Receipt Date: 20120120
  Transmission Date: 20120608
  Serious: No
  Sender: FDA-Public Use
  Company Number: US-ABBOTT-12P-163-0895414-00

PATIENT
  Sex: Male
  Weight: 109.41 kg

DRUGS (4)
  1. SIMCOR [Suspect]
     Indication: HIGH DENSITY LIPOPROTEIN INCREASED
  2. SIMCOR [Suspect]
     Indication: BLOOD TRIGLYCERIDES INCREASED
     Dosage: 500/20MG
     Dates: start: 20110801
  3. ASPIRIN [Concomitant]
     Indication: PRODUCT USED FOR UNKNOWN INDICATION
  4. SIMCOR [Suspect]
     Indication: BLOOD CHOLESTEROL ABNORMAL

REACTIONS (2)
  - FLUSHING [None]
  - SKIN BURNING SENSATION [None]
